FAERS Safety Report 11394101 (Version 1)
Quarter: 2015Q3

REPORT INFORMATION
  Report Type: Spontaneous
  Country: NG (occurrence: NG)
  Receive Date: 20150819
  Receipt Date: 20150819
  Transmission Date: 20151125
  Serious: Yes (Hospitalization)
  Sender: FDA-Public Use
  Company Number: NG-ALEMBIC PHARMACUETICALS LIMITED-2015SCAL000479

PATIENT
  Age: 62 Year
  Sex: Male

DRUGS (1)
  1. DONEPEZIL HYDROCHLORIDE. [Suspect]
     Active Substance: DONEPEZIL HYDROCHLORIDE
     Indication: DEMENTIA
     Dosage: UNK

REACTIONS (1)
  - Jealous delusion [Recovering/Resolving]
